FAERS Safety Report 20465751 (Version 3)
Quarter: 2022Q2

REPORT INFORMATION
  Report Type: Report from Study
  Country: CO (occurrence: CO)
  Receive Date: 20220212
  Receipt Date: 20220618
  Transmission Date: 20220721
  Serious: Yes (Death, Hospitalization, Other)
  Sender: FDA-Public Use
  Company Number: CO-SA-SAC20220210001499

PATIENT
  Age: 84 Year
  Sex: Female

DRUGS (1)
  1. DUPILUMAB [Suspect]
     Active Substance: DUPILUMAB
     Indication: Dermatitis atopic
     Dosage: 300 MG, QOW
     Route: 058
     Dates: start: 20210903

REACTIONS (5)
  - Death [Fatal]
  - Dermatitis [Unknown]
  - Psoriasis [Unknown]
  - Alopecia [Unknown]
  - Rash [Fatal]

NARRATIVE: CASE EVENT DATE: 20220202
